FAERS Safety Report 15393766 (Version 1)
Quarter: 2018Q3

REPORT INFORMATION
  Report Type: Spontaneous
  Country: US (occurrence: US)
  Receive Date: 20180917
  Receipt Date: 20180917
  Transmission Date: 20181010
  Serious: No
  Sender: FDA-Public Use
  Company Number: US-SA-2018SA259490

PATIENT
  Sex: Female

DRUGS (1)
  1. CEREDASE [Suspect]
     Active Substance: ALGLUCERASE
     Dosage: UNK
     Dates: start: 19890512

REACTIONS (1)
  - Maternal exposure before pregnancy [Unknown]
